FAERS Safety Report 25462859 (Version 1)
Quarter: 2025Q2

REPORT INFORMATION
  Report Type: Spontaneous
  Country: US (occurrence: None)
  Receive Date: 20250620
  Receipt Date: 20250620
  Transmission Date: 20250716
  Serious: No
  Sender: FDA-CTU
  Company Number: None

PATIENT

DRUGS (1)
  1. DEVICE [Suspect]
     Active Substance: DEVICE

REACTIONS (3)
  - Syringe issue [None]
  - Device delivery system issue [None]
  - Device dispensing error [None]
